FAERS Safety Report 25361952 (Version 1)
Quarter: 2025Q2

REPORT INFORMATION
  Report Type: Spontaneous
  Country: US (occurrence: None)
  Receive Date: 20250524
  Receipt Date: 20250524
  Transmission Date: 20250716
  Serious: Yes (Life-Threatening)
  Sender: FDA-CTU
  Company Number: None

PATIENT
  Age: 60 Year
  Sex: Female
  Weight: 60.75 kg

DRUGS (2)
  1. AVSOLA [Suspect]
     Active Substance: INFLIXIMAB-AXXQ
     Indication: Rheumatoid arthritis
     Route: 041
     Dates: start: 20250524, end: 20250524
  2. AVSOLA [Concomitant]
     Active Substance: INFLIXIMAB-AXXQ
     Dates: start: 20250524

REACTIONS (4)
  - Dyspnoea [None]
  - Hyperhidrosis [None]
  - Pallor [None]
  - Infusion related reaction [None]

NARRATIVE: CASE EVENT DATE: 20250524
